FAERS Safety Report 22000450 (Version 1)
Quarter: 2023Q1

REPORT INFORMATION
  Report Type: Spontaneous
  Country: US (occurrence: None)
  Receive Date: 20230215
  Receipt Date: 20230215
  Transmission Date: 20230418
  Serious: No
  Sender: FDA-Public Use
  Company Number: None

PATIENT
  Sex: 0

DRUGS (1)
  1. LEXISCAN [Suspect]
     Active Substance: REGADENOSON
     Indication: Cardiac stress test
     Dosage: OTHER FREQUENCY : ONCE;?
     Route: 042
     Dates: start: 20230214, end: 20230214

REACTIONS (3)
  - Headache [None]
  - Crying [None]
  - Product quality issue [None]

NARRATIVE: CASE EVENT DATE: 20230214
